APPROVED DRUG PRODUCT: CHLORZOXAZONE
Active Ingredient: CHLORZOXAZONE
Strength: 375MG
Dosage Form/Route: TABLET;ORAL
Application: A212053 | Product #001
Applicant: CHARTWELL RX SCIENCES LLC
Approved: Sep 14, 2020 | RLD: No | RS: No | Type: DISCN